FAERS Safety Report 5408556-7 (Version None)
Quarter: 2007Q3

REPORT INFORMATION
  Report Type: 
  Country: None (occurrence: None)
  Receive Date: 20070808
  Receipt Date: 20070803
  Transmission Date: 20080115
  Serious: Yes (Other)
  Sender: FDA-Public Use
  Company Number: AU-AVENTIS-200713273GDDC

PATIENT
  Age: 68 Year
  Sex: Female

DRUGS (9)
  1. ARAVA [Suspect]
     Indication: RHEUMATOID ARTHRITIS
     Route: 048
     Dates: start: 20070131, end: 20070323
  2. DUATROL                            /00020001/ [Concomitant]
     Dosage: DOSE: UNK
  3. INSULIN [Concomitant]
     Dosage: DOSE: UNK
  4. KEFLEX [Concomitant]
     Dosage: DOSE: UNK
  5. NOTEN [Concomitant]
     Dosage: DOSE: UNK
  6. ALDOMET                            /00000101/ [Concomitant]
     Dosage: DOSE: UNK
  7. THYROXIN [Concomitant]
     Dosage: DOSE: UNK
  8. CALCIUM CHLORIDE [Concomitant]
     Dosage: DOSE: UNK
  9. FISH OIL [Concomitant]
     Dosage: DOSE: UNK

REACTIONS (2)
  - HEPATIC ENZYME INCREASED [None]
  - RENAL CELL CARCINOMA STAGE UNSPECIFIED [None]
